FAERS Safety Report 4398178-1 (Version None)
Quarter: 2004Q3

REPORT INFORMATION
  Report Type: 
  Country: None (occurrence: None)
  Receive Date: 20040713
  Receipt Date: 20040630
  Transmission Date: 20050211
  Serious: Yes (Hospitalization)
  Sender: FDA-Public Use
  Company Number: 207504

PATIENT
  Age: 53 Year
  Sex: Male
  Weight: 75 kg

DRUGS (5)
  1. RITUXAN [Suspect]
     Indication: IDIOPATHIC THROMBOCYTOPENIC PURPURA
     Dosage: 700 MG, INTRAVENOUS
     Route: 042
     Dates: start: 20030820, end: 20030903
  2. ASCORBIC ACID [Concomitant]
  3. CEPHARANTHIN (CEPHARANTHINE) [Concomitant]
  4. PREDNISOLONE [Concomitant]
  5. ETIZOLAM (ETIZOLAM) [Concomitant]

REACTIONS (1)
  - PULMONARY HAEMORRHAGE [None]
